FAERS Safety Report 5801901-X (Version None)
Quarter: 2008Q3

REPORT INFORMATION
  Report Type: 
  Country: None (occurrence: None)
  Receive Date: 20080702
  Receipt Date: 20080620
  Transmission Date: 20090109
  Serious: Yes (Other)
  Sender: FDA-Public Use
  Company Number: 100#03#2008-03256

PATIENT
  Age: 71 Year
  Sex: Male

DRUGS (3)
  1. CARBOPLATIN [Suspect]
     Indication: NON-SMALL CELL LUNG CANCER
     Dosage: 1 DF ONCE DAILY
     Dates: start: 20080507
  2. NAVELBINE [Suspect]
     Indication: NON-SMALL CELL LUNG CANCER
     Dosage: 60 MG/M2 ONCE WEEKLY ORAL
     Route: 048
     Dates: start: 20080514, end: 20080514
  3. VINORELBINE TARTRATE [Suspect]
     Indication: NON-SMALL CELL LUNG CANCER
     Dosage: 1 DF ONCE WEEKLY
     Dates: start: 20080507, end: 20080513

REACTIONS (2)
  - CHEST DISCOMFORT [None]
  - NON-CARDIAC CHEST PAIN [None]
